FAERS Safety Report 25515370 (Version 3)
Quarter: 2025Q3

REPORT INFORMATION
  Report Type: Report from Study
  Country: CN (occurrence: CN)
  Receive Date: 20250704
  Receipt Date: 20250717
  Transmission Date: 20251021
  Serious: Yes (Hospitalization, Other)
  Sender: AMGEN
  Company Number: CN-AMGEN-CHNNI2024245241

PATIENT
  Age: 77 Year
  Sex: Male
  Weight: 77 kg

DRUGS (14)
  1. DENOSUMAB [Suspect]
     Active Substance: DENOSUMAB
     Indication: Bone cancer metastatic
     Dosage: 120 MILLIGRAM, Q4WK
     Route: 058
     Dates: start: 20241121
  2. BEVACIZUMAB [Concomitant]
     Active Substance: BEVACIZUMAB
     Route: 042
     Dates: start: 20241025, end: 20250218
  3. PACLITAXEL [Concomitant]
     Active Substance: PACLITAXEL
     Route: 040
     Dates: start: 20241025, end: 20250218
  4. FUROSEMIDE [Concomitant]
     Active Substance: FUROSEMIDE
     Route: 048
     Dates: start: 20241028
  5. SPIRONOLACTONE [Concomitant]
     Active Substance: SPIRONOLACTONE
     Route: 048
     Dates: start: 20241028
  6. CAMRELIZUMAB [Concomitant]
     Active Substance: CAMRELIZUMAB
     Route: 042
     Dates: start: 20241116, end: 20250218
  7. CARBOPLATIN [Concomitant]
     Active Substance: CARBOPLATIN
     Route: 042
     Dates: start: 20241025, end: 20250218
  8. Human interleukin-11 [Concomitant]
     Route: 058
     Dates: start: 20241120
  9. MEGESTROL ACETATE [Concomitant]
     Active Substance: MEGESTROL ACETATE
     Route: 048
     Dates: start: 20241120, end: 202412
  10. INSULIN NOS [Concomitant]
     Active Substance: INSULIN NOS
     Route: 042
     Dates: start: 20241116, end: 20241225
  11. Yang zheng [Concomitant]
     Route: 048
     Dates: start: 20241118, end: 20241225
  12. Disodium cantharidinate;Pyridoxine [Concomitant]
     Route: 040
     Dates: start: 20241118, end: 20241225
  13. CANTHARIDES [Concomitant]
     Active Substance: HOMEOPATHICS\LYTTA VESICATORIA
     Route: 048
     Dates: start: 20241121, end: 202412
  14. Thymopolypeptides [Concomitant]
     Route: 048
     Dates: start: 20241121, end: 202411

REACTIONS (6)
  - Pathological fracture [Not Recovered/Not Resolved]
  - Pathological fracture [Recovered/Resolved]
  - Pneumonia [Recovered/Resolved]
  - Hypocalcaemia [Recovered/Resolved]
  - Osteoporosis [Not Recovered/Not Resolved]
  - Anaemia [Recovered/Resolved]

NARRATIVE: CASE EVENT DATE: 20241122
